FAERS Safety Report 5290613-X (Version None)
Quarter: 2007Q2

REPORT INFORMATION
  Report Type: 
  Country: None (occurrence: None)
  Receive Date: 20070405
  Receipt Date: 20070405
  Transmission Date: 20071010
  Serious: Yes (Hospitalization)
  Sender: FDA-Public Use
  Company Number: None

PATIENT
  Age: 83 Year
  Sex: Male
  Weight: 66 kg

DRUGS (7)
  1. CETUXIMAB [Suspect]
     Indication: PANCREATIC CARCINOMA
     Dosage: WEEKLY
     Dates: start: 20060701, end: 20060801
  2. GEMCITABINE HCL [Suspect]
     Indication: PANCREATIC CARCINOMA
     Dosage: WEEKLY
     Dates: start: 20060701, end: 20060801
  3. PROCHLOROPERAZINE [Concomitant]
  4. RANITIDINE [Concomitant]
  5. PANCRELIPASE [Concomitant]
  6. SENNAKOT [Concomitant]
  7. ASPIRIN [Concomitant]

REACTIONS (3)
  - ASCITES [None]
  - OEDEMA PERIPHERAL [None]
  - PITTING OEDEMA [None]
